FAERS Safety Report 6805960-7 (Version None)
Quarter: 2010Q2

REPORT INFORMATION
  Report Type: 
  Country: None (occurrence: None)
  Receive Date: 20100629
  Receipt Date: 20080222
  Transmission Date: 20101027
  Serious: Yes (Hospitalization, Other)
  Sender: FDA-Public Use
  Company Number: US-PFIZER INC-2007087180

PATIENT
  Sex: Female
  Weight: 158.3 kg

DRUGS (24)
  1. ZYVOX [Suspect]
     Indication: PNEUMONIA
     Route: 042
     Dates: start: 20071010, end: 20071011
  2. ZYVOX [Suspect]
     Indication: STAPHYLOCOCCAL INFECTION
  3. ZYVOX [Suspect]
     Indication: URINARY TRACT INFECTION
  4. ZYVOX [Suspect]
     Indication: CELLULITIS
  5. ZYVOX [Suspect]
     Indication: PNEUMONIA
     Route: 048
     Dates: start: 20071011, end: 20071012
  6. ZYVOX [Suspect]
     Indication: STAPHYLOCOCCAL INFECTION
  7. ZYVOX [Suspect]
     Indication: URINARY TRACT INFECTION
  8. ZYVOX [Suspect]
     Indication: CELLULITIS
  9. ALBUTEROL [Concomitant]
     Dates: start: 20071008, end: 20071013
  10. GRANULEX [Concomitant]
     Dates: start: 20071008, end: 20071019
  11. ROCEPHIN [Concomitant]
     Dates: start: 20071008, end: 20071019
  12. LOVENOX [Concomitant]
     Dates: start: 20071008, end: 20071014
  13. APRESOLINE [Concomitant]
     Dates: start: 20071008, end: 20071012
  14. WARFARIN SODIUM [Concomitant]
     Dates: start: 20071010, end: 20071012
  15. INSULIN [Concomitant]
     Dates: start: 20071010
  16. INSULIN [Concomitant]
  17. ATROVENT [Concomitant]
     Dates: start: 20071008, end: 20071013
  18. IMDUR [Concomitant]
     Dates: start: 20071008, end: 20071019
  19. SYNTHROID [Concomitant]
     Dates: start: 20071008
  20. METHYLPREDNISOLONE SODIUM SUCCINATE [Concomitant]
     Route: 042
     Dates: start: 20071010
  21. REGLAN [Concomitant]
     Dates: start: 20071008, end: 20071010
  22. METRONIDAZOLE [Concomitant]
     Dates: start: 20071011, end: 20071018
  23. BACTROBAN [Concomitant]
     Dates: start: 20071010, end: 20071019
  24. PROTONIX [Concomitant]
     Dates: start: 20071010, end: 20071012

REACTIONS (1)
  - CONVULSION [None]
